FAERS Safety Report 13145376 (Version 4)
Quarter: 2017Q1

REPORT INFORMATION
  Report Type: Spontaneous
  Country: JP (occurrence: JP)
  Receive Date: 20170124
  Receipt Date: 20170302
  Transmission Date: 20170428
  Serious: Yes (Life-Threatening)
  Sender: FDA-Public Use
  Company Number: JP-SA-2016SA227183

PATIENT
  Age: 72 Year
  Sex: Female
  Weight: 49 kg

DRUGS (18)
  1. RABEPRAZOLE SODIUM. [Concomitant]
     Active Substance: RABEPRAZOLE SODIUM
     Route: 065
     Dates: start: 20161019
  2. NAUZELIN [Concomitant]
     Active Substance: DOMPERIDONE
     Route: 065
     Dates: start: 20161019
  3. HEPARIN SODIUM. [Concomitant]
     Active Substance: HEPARIN SODIUM
     Route: 065
     Dates: start: 20161121, end: 20161122
  4. MAGMITT [Concomitant]
     Active Substance: MAGNESIUM OXIDE
     Route: 065
     Dates: start: 20161119, end: 20161121
  5. POLARAMINE [Concomitant]
     Active Substance: DEXCHLORPHENIRAMINE MALEATE
     Route: 065
     Dates: start: 20161121, end: 20161121
  6. ADRENALINE [Suspect]
     Active Substance: EPINEPHRINE
     Indication: ANAPHYLACTIC SHOCK
     Route: 042
     Dates: start: 20161121, end: 20161121
  7. SM-33 [Concomitant]
     Dosage: FORM WAS POWDER
     Route: 065
     Dates: start: 20161019
  8. ALOXI [Concomitant]
     Active Substance: PALONOSETRON HYDROCHLORIDE
     Indication: PREMEDICATION
     Route: 065
     Dates: start: 20161121, end: 20161121
  9. MINERALS NOS/VITAMINS NOS/AMINO ACIDS NOS [Concomitant]
     Dosage: FORM WAS SOLUTION
     Route: 065
     Dates: start: 20161109
  10. ELPLAT [Suspect]
     Active Substance: OXALIPLATIN
     Indication: GASTRIC CANCER
     Dosage: 190 MG/BODY (130.7 MG/M2)
     Route: 041
     Dates: start: 20161121, end: 20161121
  11. REBAMIPIDE [Concomitant]
     Active Substance: REBAMIPIDE
     Route: 065
     Dates: start: 20161019
  12. EMEND [Concomitant]
     Active Substance: APREPITANT
     Indication: PREMEDICATION
     Route: 065
     Dates: start: 20161121, end: 20161121
  13. BIOFERMIN [Concomitant]
     Active Substance: BACILLUS SUBTILIS\LACTOBACILLUS ACIDOPHILUS\STREPTOCOCCUS FAECAIS
     Route: 065
     Dates: start: 20161117
  14. TAKECAB [Concomitant]
     Active Substance: VONOPRAZAN FUMURATE
     Route: 065
     Dates: start: 20161117, end: 20161121
  15. GASTER [Concomitant]
     Active Substance: FAMOTIDINE
     Route: 065
     Dates: start: 20161121, end: 20161121
  16. INOVAN [Concomitant]
     Active Substance: DOPAMINE HYDROCHLORIDE
     Route: 065
     Dates: start: 20161121, end: 20161121
  17. DEXAMETHASONE SODIUM PHOSPHATE. [Concomitant]
     Active Substance: DEXAMETHASONE SODIUM PHOSPHATE
     Indication: PREMEDICATION
     Route: 065
     Dates: start: 20161121, end: 20161121
  18. SOL-MELCORT [Concomitant]
     Active Substance: METHYLPREDNISOLONE SODIUM SUCCINATE
     Route: 065
     Dates: start: 20161121, end: 20161121

REACTIONS (2)
  - Anaphylactic shock [Recovering/Resolving]
  - Stress cardiomyopathy [Recovered/Resolved]

NARRATIVE: CASE EVENT DATE: 20161121
